FAERS Safety Report 18322112 (Version 1)
Quarter: 2020Q3

REPORT INFORMATION
  Report Type: Spontaneous
  Country: US (occurrence: US)
  Receive Date: 20200928
  Receipt Date: 20200928
  Transmission Date: 20201103
  Serious: Yes (Other)
  Sender: FDA-Public Use
  Company Number: US-LANNETT COMPANY, INC.-US-2020LAN000239

PATIENT
  Sex: Male

DRUGS (2)
  1. CODEINE SULFATE. [Suspect]
     Active Substance: CODEINE SULFATE
     Indication: PAIN MANAGEMENT
     Dosage: UNK
     Route: 065
  2. OXYCONTIN [Suspect]
     Active Substance: OXYCODONE HYDROCHLORIDE
     Indication: PAIN MANAGEMENT
     Dosage: UNK
     Route: 065

REACTIONS (5)
  - Dependence [Not Recovered/Not Resolved]
  - Overdose [Unknown]
  - Impaired work ability [Not Recovered/Not Resolved]
  - Pain [Unknown]
  - Substance use disorder [Not Recovered/Not Resolved]
